FAERS Safety Report 8544217-3 (Version None)
Quarter: 2012Q3

REPORT INFORMATION
  Report Type: 
  Country: None (occurrence: None)
  Receive Date: 20120727
  Receipt Date: 20120725
  Transmission Date: 20120928
  Serious: Yes (Hospitalization, Other)
  Sender: FDA-Public Use
  Company Number: PHHY2012DE015495

PATIENT
  Sex: Male
  Weight: 88.1 kg

DRUGS (11)
  1. OMEPRAZOLE [Concomitant]
     Indication: PROPHYLAXIS
     Dosage: 20 MG, DAILY
  2. TASIGNA [Suspect]
     Indication: CHRONIC MYELOID LEUKAEMIA
     Dosage: 600 MG/DAY
     Route: 048
     Dates: start: 20111202
  3. AMLODIPINE [Concomitant]
     Indication: CARDIAC DISORDER
     Dosage: 5 MG, DAILY
  4. FUROSEMIDE [Concomitant]
     Indication: DIURETIC THERAPY
     Dosage: 80 MG, DAILY
  5. ASPIRIN [Concomitant]
     Indication: ANTIPLATELET THERAPY
     Dosage: 100 MG, DAILY
  6. PRAVASTATIN [Concomitant]
     Indication: HYPERCHOLESTEROLAEMIA
     Dosage: 20 MG, DAILY
  7. TASIGNA [Suspect]
     Dosage: 450 MG, DAILY
     Route: 048
  8. METOPROLOL [Concomitant]
     Indication: HYPERTENSION
     Dosage: 47.5 MG, DAILY
  9. ALLOPURINOL [Concomitant]
     Indication: BLOOD URIC ACID INCREASED
     Dosage: 300 MG, DAILY
     Dates: start: 20120223
  10. ACTRAPHANE [Concomitant]
     Indication: TYPE 2 DIABETES MELLITUS
     Dosage: 24 UKN, UNK
     Route: 058
  11. LITAREK [Concomitant]
     Indication: CHRONIC MYELOID LEUKAEMIA
     Dosage: 500 MG, DAILY
     Route: 048
     Dates: start: 20111101, end: 20111101

REACTIONS (3)
  - DYSPNOEA [None]
  - OEDEMA [None]
  - PNEUMONIA [None]
